FAERS Safety Report 9455543 (Version 1)
Quarter: 2013Q3

REPORT INFORMATION
  Report Type: Spontaneous
  Country: US (occurrence: US)
  Receive Date: 20130813
  Receipt Date: 20130813
  Transmission Date: 20140515
  Serious: No
  Sender: FDA-Public Use
  Company Number: US-PFIZER INC-2013230897

PATIENT
  Age: 75 Year
  Sex: Female
  Weight: 49.89 kg

DRUGS (4)
  1. FLUCONAZOLE [Suspect]
     Indication: VULVOVAGINAL PAIN
     Dosage: UNK
     Route: 048
  2. FLUCONAZOLE [Suspect]
     Dosage: 100 MG, ONCE A DAY
     Route: 048
     Dates: start: 20130626, end: 20130703
  3. FLUCONAZOLE [Suspect]
     Dosage: 100 MG, ALTERNATE DAY
     Route: 048
     Dates: start: 20130703
  4. PREMARIN VAGINAL CREAM [Concomitant]
     Dosage: UNK, 3X/WEEK
     Route: 067

REACTIONS (8)
  - Flatulence [Unknown]
  - Pain [Unknown]
  - Nausea [Unknown]
  - Headache [Unknown]
  - Diarrhoea [Unknown]
  - Dyspepsia [Unknown]
  - Dizziness [Unknown]
  - Haemorrhoids [Unknown]
